FAERS Safety Report 6073448-X (Version None)
Quarter: 2009Q1

REPORT INFORMATION
  Report Type: 
  Country: None (occurrence: None)
  Receive Date: 20090211
  Receipt Date: 20090204
  Transmission Date: 20090719
  Serious: Yes (Other)
  Sender: FDA-Public Use
  Company Number: GB-TEVA-185099ISR

PATIENT
  Age: 55 Year
  Sex: Male
  Weight: 109 kg

DRUGS (1)
  1. ALENDRONIC ACID [Suspect]
     Route: 048
     Dates: start: 20081226, end: 20090110

REACTIONS (1)
  - RECTAL HAEMORRHAGE [None]
